FAERS Safety Report 7833895-X (Version None)
Quarter: 2011Q4

REPORT INFORMATION
  Report Type: 
  Country: None (occurrence: None)
  Receive Date: 20111024
  Receipt Date: 20111021
  Transmission Date: 20120403
  Serious: Yes (Hospitalization)
  Sender: FDA-Public Use
  Company Number: SK-PFIZER INC-2011254509

PATIENT
  Age: 67 Year
  Sex: Female
  Weight: 97 kg

DRUGS (11)
  1. SUNITINIB MALATE [Suspect]
     Dosage: 37.5 MG, UNK
     Dates: start: 20100308, end: 20100404
  2. SUNITINIB MALATE [Suspect]
     Dosage: 37.5 MG, UNK
     Dates: start: 20100712, end: 20100726
  3. SUNITINIB MALATE [Suspect]
     Dosage: 50 MG, UNK
     Dates: start: 20091103, end: 20091201
  4. OMEPRAZOLE [Concomitant]
     Indication: GASTRIC ULCER
     Dosage: UNK
     Dates: start: 20090917
  5. SUNITINIB MALATE [Suspect]
     Indication: RENAL CELL CARCINOMA
     Dosage: 50 MG, UNK
     Dates: start: 20090929, end: 20091019
  6. SUNITINIB MALATE [Suspect]
     Dosage: 50 MG, UNK
     Dates: start: 20091215, end: 20100111
  7. SUNITINIB MALATE [Suspect]
     Dosage: 37.5 MG, UNK
     Dates: start: 20100125, end: 20100221
  8. SUNITINIB MALATE [Suspect]
     Dosage: 37.5 MG, UNK
     Dates: start: 20100531, end: 20100627
  9. FRAGMIN [Concomitant]
     Indication: EMBOLISM
     Dosage: UNK
     Dates: start: 20090101
  10. SUNITINIB MALATE [Suspect]
     Dosage: 37.5 MG, UNK
     Dates: start: 20100419, end: 20100516
  11. METOCLOPRAMIDE [Concomitant]
     Indication: VOMITING
     Dosage: UNK
     Dates: start: 20090917

REACTIONS (1)
  - SKIN ULCER [None]
